FAERS Safety Report 6186492-9 (Version None)
Quarter: 2009Q2

REPORT INFORMATION
  Report Type: 
  Country: None (occurrence: None)
  Receive Date: 20090512
  Receipt Date: 20090504
  Transmission Date: 20091009
  Serious: Yes (Other)
  Sender: FDA-Public Use
  Company Number: US-JNJFOC-20090501108

PATIENT
  Age: 62 Year
  Sex: Male

DRUGS (4)
  1. HALOPERIDOL [Suspect]
     Indication: SCHIZOPHRENIA, PARANOID TYPE
     Route: 030
  2. DIAZEPAM [Suspect]
     Indication: DELIRIUM
     Route: 030
  3. OLANZAPINE [Suspect]
     Dosage: TITRATED 20 MG AT NIGHT
     Route: 030
  4. OLANZAPINE [Suspect]
     Indication: DELIRIUM
     Route: 030

REACTIONS (2)
  - CATATONIA [None]
  - DRUG INEFFECTIVE [None]
